FAERS Safety Report 17349492 (Version 1)
Quarter: 2020Q1

REPORT INFORMATION
  Report Type: Spontaneous
  Country: US (occurrence: US)
  Receive Date: 20200130
  Receipt Date: 20200130
  Transmission Date: 20200409
  Serious: Yes (Hospitalization)
  Sender: FDA-Public Use
  Company Number: US-AUROBINDO-AUR-APL-2019-041992

PATIENT
  Sex: Female

DRUGS (3)
  1. DULOXETINE. [Suspect]
     Active Substance: DULOXETINE
     Indication: FIBROMYALGIA
     Dosage: FOR 3 YEARS
     Route: 065
  2. DULOXETINE. [Suspect]
     Active Substance: DULOXETINE
     Dosage: 100 MILLIGRAM (INCREASED)
     Route: 065
  3. DULOXETINE. [Suspect]
     Active Substance: DULOXETINE
     Dosage: GRADUALLY REDUCING
     Route: 065

REACTIONS (6)
  - Weight increased [Unknown]
  - Binge eating [Unknown]
  - Irritability [Unknown]
  - Drug withdrawal syndrome [Unknown]
  - Pain [Unknown]
  - Tremor [Unknown]
